FAERS Safety Report 14215707 (Version 3)
Quarter: 2021Q3

REPORT INFORMATION
  Report Type: Spontaneous
  Country: DE (occurrence: DE)
  Receive Date: 20171122
  Receipt Date: 20210915
  Transmission Date: 20211014
  Serious: Yes (Hospitalization, Congenital Anomaly, Other)
  Sender: FDA-Public Use
  Company Number: DE-ABBVIE-17P-062-2171325-00

PATIENT
  Sex: Female

DRUGS (8)
  1. MACROGOL [Concomitant]
     Active Substance: POLYETHYLENE GLYCOLS
     Indication: PRODUCT USED FOR UNKNOWN INDICATION
  2. PROTAPHANE [Concomitant]
     Active Substance: INSULIN HUMAN
     Indication: PRODUCT USED FOR UNKNOWN INDICATION
     Dates: start: 2014
  3. PANTOPRAZOL [Concomitant]
     Active Substance: PANTOPRAZOLE SODIUM
     Indication: PRODUCT USED FOR UNKNOWN INDICATION
  4. DICLOFENAC [Concomitant]
     Active Substance: DICLOFENAC
     Indication: PRODUCT USED FOR UNKNOWN INDICATION
  5. L?THYROXINE [Concomitant]
     Active Substance: LEVOTHYROXINE
     Indication: PRODUCT USED FOR UNKNOWN INDICATION
  6. NOVORAPID [Concomitant]
     Active Substance: INSULIN ASPART
     Indication: PRODUCT USED FOR UNKNOWN INDICATION
     Dates: start: 2014
  7. VALPROATE SODIUM. [Suspect]
     Active Substance: VALPROATE SODIUM
     Indication: MATERNAL EXPOSURE TIMING UNSPECIFIED
     Route: 064
  8. ERGENYL CHRONO [Suspect]
     Active Substance: VALPROIC ACID
     Indication: MATERNAL EXPOSURE TIMING UNSPECIFIED
     Route: 064

REACTIONS (45)
  - Sensory disturbance [Not Recovered/Not Resolved]
  - Ventricular septal defect [Recovered/Resolved]
  - Wheezing [Unknown]
  - Atrial septal defect [Recovered/Resolved]
  - Posture abnormal [Recovering/Resolving]
  - Neonatal respiratory acidosis [Unknown]
  - Disorientation [Unknown]
  - Accidental exposure to product by child [Unknown]
  - Tricuspid valve incompetence [Unknown]
  - Late metabolic acidosis of newborn [Unknown]
  - Coordination abnormal [Unknown]
  - Gastroenteritis rotavirus [Recovered/Resolved]
  - Respiratory syncytial virus infection [Recovered/Resolved]
  - Adjustment disorder [Unknown]
  - Sensory integrative dysfunction [Not Recovered/Not Resolved]
  - Cystic fibrosis [Unknown]
  - Myoclonus [Unknown]
  - Tachypnoea [Unknown]
  - Muscle tone disorder [Not Recovered/Not Resolved]
  - Ear infection [Unknown]
  - Developmental delay [Recovering/Resolving]
  - Muscle twitching [Unknown]
  - Congenital eyelid malformation [Unknown]
  - Cognitive disorder [Unknown]
  - Hypokinesia [Not Recovered/Not Resolved]
  - Bronchitis [Unknown]
  - Autism spectrum disorder [Unknown]
  - Foetal anticonvulsant syndrome [Not Recovered/Not Resolved]
  - Congenital nose malformation [Unknown]
  - Congenital foot malformation [Unknown]
  - Sleep apnoea syndrome [Unknown]
  - Clinodactyly [Unknown]
  - Hypotonia [Unknown]
  - Respiratory syncytial virus infection [Unknown]
  - Toxicity to various agents [Unknown]
  - Mental disability [Not Recovered/Not Resolved]
  - Mitral valve incompetence [Recovered/Resolved]
  - Gross motor delay [Not Recovered/Not Resolved]
  - Polycystic ovaries [Unknown]
  - Motor dysfunction [Unknown]
  - Fine motor skill dysfunction [Unknown]
  - Speech disorder developmental [Recovering/Resolving]
  - Social problem [Unknown]
  - Withdrawal syndrome [Unknown]
  - Foetal exposure during pregnancy [Unknown]

NARRATIVE: CASE EVENT DATE: 2014
